FAERS Safety Report 6959649-4 (Version None)
Quarter: 2010Q3

REPORT INFORMATION
  Report Type: 
  Country: None (occurrence: None)
  Receive Date: 20100823
  Receipt Date: 20100428
  Transmission Date: 20110219
  Serious: No
  Sender: FDA-Public Use
  Company Number: 8054862

PATIENT
  Sex: Female

DRUGS (3)
  1. CERTOLIZUMAB PEGOL [Suspect]
     Indication: CROHN'S DISEASE
     Dosage: (400 MG MONTHLY SUBCUTANEOUS)
     Route: 058
     Dates: start: 20090115
  2. CERTOLIZUMAB PEGOL [Suspect]
  3. CELEXA [Concomitant]

REACTIONS (2)
  - ADJUSTMENT DISORDER WITH DEPRESSED MOOD [None]
  - FATIGUE [None]
